FAERS Safety Report 8851434 (Version 1)
Quarter: 2012Q4

REPORT INFORMATION
  Report Type: 
  Country: US (occurrence: US)
  Receive Date: 20121021
  Receipt Date: 20121021
  Transmission Date: 20130627
  Serious: No
  Sender: FDA-Public Use
  Company Number: US-009507513-1210USA004423

PATIENT
  Age: 3 None
  Sex: Female

DRUGS (4)
  1. SINGULAIR [Suspect]
     Indication: ASTHMA
     Dosage: 4 mg, qd
     Route: 048
     Dates: start: 201203, end: 20121006
  2. SINGULAIR [Suspect]
     Indication: HYPERSENSITIVITY
  3. QVAR [Concomitant]
  4. ALBUTEROL [Concomitant]

REACTIONS (7)
  - Abnormal behaviour [Unknown]
  - Gastroenteritis viral [Unknown]
  - Haematemesis [Unknown]
  - Aggression [Unknown]
  - Agitation [Unknown]
  - Diarrhoea [Unknown]
  - Drug dose omission [Unknown]
